FAERS Safety Report 6973394-0 (Version None)
Quarter: 2010Q3

REPORT INFORMATION
  Report Type: 
  Country: None (occurrence: None)
  Receive Date: 20100909
  Receipt Date: 20100903
  Transmission Date: 20110219
  Serious: Yes (Hospitalization)
  Sender: FDA-Public Use
  Company Number: CA-BAYER-201032702NA

PATIENT
  Age: 87 Year
  Sex: Male
  Weight: 77 kg

DRUGS (10)
  1. CIPRO [Suspect]
     Indication: ARTHRITIS BACTERIAL
     Dosage: TOTAL DAILY DOSE: 1000 MG  UNIT DOSE: 500 MG
     Route: 048
     Dates: start: 20070101
  2. RISPERIDONE [Concomitant]
  3. HALOPERIDOL [Concomitant]
  4. TRAZODONE HCL [Concomitant]
  5. VENLAFAXINE [Concomitant]
  6. METFORMIN [Concomitant]
  7. CLONAZEPAM [Concomitant]
  8. VITAMIN D [Concomitant]
  9. CARBIDOPA AND LEVODOPA [Concomitant]
  10. CALCIUM [Concomitant]

REACTIONS (3)
  - ANAEMIA MACROCYTIC [None]
  - FALL [None]
  - HIP FRACTURE [None]
